FAERS Safety Report 8124891-6 (Version None)
Quarter: 2012Q1

REPORT INFORMATION
  Report Type: 
  Country: None (occurrence: None)
  Receive Date: 20120209
  Receipt Date: 20120209
  Transmission Date: 20120608
  Serious: Yes (Other)
  Sender: FDA-Public Use
  Company Number: US-PFIZER INC-2012028809

PATIENT
  Sex: Female

DRUGS (3)
  1. REBIF [Suspect]
     Dosage: 8.8 MCG, 3 IN 1 WEEK
     Route: 058
     Dates: start: 20111203
  2. REBIF [Suspect]
     Dosage: 8.8 MCG, 3 IN 1 WEEK
     Route: 058
     Dates: start: 20111123
  3. ARMODAFINIL [Suspect]
     Indication: OESOPHAGEAL STENOSIS
     Dosage: UNK

REACTIONS (6)
  - CONVULSION [None]
  - HEAD INJURY [None]
  - VOMITING PROJECTILE [None]
  - LOSS OF CONSCIOUSNESS [None]
  - DYSPHONIA [None]
  - INJECTION SITE ERYTHEMA [None]
